FAERS Safety Report 4928277-4 (Version None)
Quarter: 2006Q1

REPORT INFORMATION
  Report Type: 
  Country: None (occurrence: None)
  Receive Date: 20060228
  Receipt Date: 20050829
  Transmission Date: 20060701
  Serious: Yes (Hospitalization, Disabling)
  Sender: FDA-Public Use
  Company Number: US-MERCK-0508USA05082

PATIENT
  Age: 54 Year
  Sex: Female
  Weight: 120 kg

DRUGS (2)
  1. VIOXX [Suspect]
     Indication: PAIN
     Route: 048
     Dates: start: 19990820, end: 20041001
  2. VIOXX [Suspect]
     Indication: JOINT STIFFNESS
     Route: 048
     Dates: start: 19990820, end: 20041001

REACTIONS (8)
  - ANXIETY [None]
  - ARTHROPATHY [None]
  - DEPRESSION [None]
  - DIABETES MELLITUS [None]
  - INTERVERTEBRAL DISC PROTRUSION [None]
  - MUSCULOSKELETAL DISORDER [None]
  - MYOCARDIAL INFARCTION [None]
  - WRIST FRACTURE [None]
